FAERS Safety Report 6221985-7 (Version None)
Quarter: 2009Q2

REPORT INFORMATION
  Report Type: 
  Country: None (occurrence: None)
  Receive Date: 20090608
  Receipt Date: 20090608
  Transmission Date: 20091009
  Serious: Yes (Life-Threatening, Hospitalization, Congenital Anomaly, Other)
  Sender: FDA-Public Use
  Company Number: None

PATIENT
  Age: 52 Year
  Sex: Female
  Weight: 65.7716 kg

DRUGS (2)
  1. AVELOX [Suspect]
     Indication: BRONCHITIS
     Dosage: 400 MG. ONCE DAILY PO
     Route: 048
     Dates: start: 20030905, end: 20030907
  2. AVELOX [Suspect]
     Indication: UPPER RESPIRATORY TRACT INFECTION
     Dosage: 400 MG. ONCE DAILY PO
     Route: 048
     Dates: start: 20030905, end: 20030907

REACTIONS (31)
  - ALLERGY TO ANIMAL [None]
  - ALLERGY TO PLANTS [None]
  - ANXIETY [None]
  - APPARENT DEATH [None]
  - ASTHMA [None]
  - BRONCHIAL HYPERREACTIVITY [None]
  - BRONCHOSPASM [None]
  - BURNING SENSATION [None]
  - CYANOSIS [None]
  - DIZZINESS [None]
  - DYSPNOEA [None]
  - EYELID OEDEMA [None]
  - FEAR [None]
  - LARYNGOSPASM [None]
  - LIP SWELLING [None]
  - NAUSEA [None]
  - NERVOUSNESS [None]
  - PALPITATIONS [None]
  - PERFUME SENSITIVITY [None]
  - PNEUMONIA [None]
  - PSYCHOTIC DISORDER [None]
  - SEASONAL ALLERGY [None]
  - STRIDOR [None]
  - SWELLING FACE [None]
  - THROAT TIGHTNESS [None]
  - TINNITUS [None]
  - TREMOR [None]
  - URTICARIA [None]
  - VISION BLURRED [None]
  - VISUAL IMPAIRMENT [None]
  - VOMITING [None]
